FAERS Safety Report 15577379 (Version 1)
Quarter: 2018Q4

REPORT INFORMATION
  Report Type: Spontaneous
  Country: SE (occurrence: SE)
  Receive Date: 20181102
  Receipt Date: 20181102
  Transmission Date: 20190205
  Serious: Yes (Hospitalization)
  Sender: FDA-Public Use
  Company Number: SE-TEVA-2018-SE-970736

PATIENT
  Age: 18 Year
  Sex: Female

DRUGS (2)
  1. OXASCAND [Suspect]
     Active Substance: OXAZEPAM
     Dosage: ^APPROXIMATELY 50 PIECES OXASCAND 10 MG ^
     Route: 065
     Dates: start: 20180928, end: 20180928
  2. ELVANSE [Suspect]
     Active Substance: LISDEXAMFETAMINE DIMESYLATE
     Dosage: APPROXIMATELY ABOUT ^30^, 30 MG
     Route: 065
     Dates: start: 20180928, end: 20180928

REACTIONS (4)
  - Intentional self-injury [Recovering/Resolving]
  - Hypokalaemia [Recovering/Resolving]
  - Toxicity to various agents [Recovering/Resolving]
  - Suicidal ideation [Recovering/Resolving]

NARRATIVE: CASE EVENT DATE: 20180928
